FAERS Safety Report 6824668-5 (Version None)
Quarter: 2010Q3

REPORT INFORMATION
  Report Type: 
  Country: None (occurrence: None)
  Receive Date: 20100708
  Receipt Date: 20061110
  Transmission Date: 20110219
  Serious: No
  Sender: FDA-Public Use
  Company Number: US-PFIZER INC-2006142663

PATIENT
  Sex: Male
  Weight: 81.65 kg

DRUGS (4)
  1. CHANTIX [Suspect]
     Indication: SMOKING CESSATION THERAPY
     Dates: start: 20060901
  2. ANTIHYPERTENSIVES [Concomitant]
  3. ACETYLSALICYLIC ACID [Concomitant]
  4. LIPITOR [Concomitant]

REACTIONS (8)
  - ABNORMAL DREAMS [None]
  - ANXIETY [None]
  - COGNITIVE DISORDER [None]
  - IRRITABILITY [None]
  - NAUSEA [None]
  - NIGHTMARE [None]
  - PARENT-CHILD PROBLEM [None]
  - TENSION [None]
